FAERS Safety Report 11984380 (Version 1)
Quarter: 2016Q1

REPORT INFORMATION
  Report Type: Spontaneous
  Country: US (occurrence: US)
  Receive Date: 20160201
  Receipt Date: 20160201
  Transmission Date: 20160526
  Serious: Yes (Hospitalization)
  Sender: FDA-Public Use
  Company Number: US-KADMON PHARMACEUTICALS, LLC-KAD201508-002615

PATIENT
  Age: 54 Year
  Sex: Male
  Weight: 107 kg

DRUGS (22)
  1. TRAZODONE HYDROCHLORIDE. [Concomitant]
     Active Substance: TRAZODONE HYDROCHLORIDE
     Dates: start: 20140514
  2. NOVOLOG [Concomitant]
     Active Substance: INSULIN ASPART
     Dates: start: 20141209
  3. SINGULAIR [Concomitant]
     Active Substance: MONTELUKAST SODIUM
     Dates: start: 20141209
  4. KEFLEX [Concomitant]
     Active Substance: CEPHALEXIN
     Dates: start: 20150723
  5. SOVALDI [Suspect]
     Active Substance: SOFOSBUVIR
     Indication: HEPATITIS C
     Dosage: TABLET
     Route: 048
     Dates: start: 20150507
  6. METFORMIN HCL [Concomitant]
     Active Substance: METFORMIN HYDROCHLORIDE
     Dates: start: 20141209
  7. NEXIUM [Concomitant]
     Active Substance: ESOMEPRAZOLE MAGNESIUM
     Dates: start: 20141209
  8. LANTUS [Concomitant]
     Active Substance: INSULIN GLARGINE
     Dates: start: 20141209
  9. CARVEDILOL. [Concomitant]
     Active Substance: CARVEDILOL
     Dates: start: 20140514
  10. RIBAVIRIN. [Suspect]
     Active Substance: RIBAVIRIN
     Route: 048
     Dates: start: 20150611
  11. ASPIRIN. [Concomitant]
     Active Substance: ASPIRIN
     Dates: start: 20140514
  12. GABAPENTIN. [Concomitant]
     Active Substance: GABAPENTIN
     Dates: start: 20140514
  13. RESTORIL [Concomitant]
     Active Substance: TEMAZEPAM
     Dates: start: 20140514
  14. ACETAMINOPHEN. [Concomitant]
     Active Substance: ACETAMINOPHEN
     Dates: start: 20140514
  15. FLORASTOR [Concomitant]
     Active Substance: SACCHAROMYCES CEREVISIAE
     Dates: start: 20140514
  16. TRAZAMINE [Concomitant]
     Active Substance: CHOLINE\TRAZODONE HYDROCHLORIDE
     Dates: start: 20140528
  17. COREG [Concomitant]
     Active Substance: CARVEDILOL
     Dates: start: 20141209
  18. RIBAVIRIN. [Suspect]
     Active Substance: RIBAVIRIN
     Indication: HEPATITIS C
     Dates: start: 201505, end: 20150610
  19. BACTRIM DS [Concomitant]
     Active Substance: SULFAMETHOXAZOLE\TRIMETHOPRIM
     Dates: start: 20150608
  20. FLOMAX [Concomitant]
     Active Substance: TAMSULOSIN HYDROCHLORIDE
     Dates: start: 20140514
  21. SIMVASTATIN. [Concomitant]
     Active Substance: SIMVASTATIN
     Dates: start: 20140514
  22. NYSTATIN. [Concomitant]
     Active Substance: NYSTATIN
     Dates: start: 20150515

REACTIONS (1)
  - Haemoglobin decreased [Recovering/Resolving]
